FAERS Safety Report 10375033 (Version 1)
Quarter: 2014Q3

REPORT INFORMATION
  Report Type: Spontaneous
  Country: DE (occurrence: DE)
  Receive Date: 20140811
  Receipt Date: 20140811
  Transmission Date: 20150326
  Serious: Yes (Hospitalization, Other)
  Sender: FDA-Public Use
  Company Number: DE-B.I. PHARMACEUTICALS,INC./RIDGEFIELD-2014-BI-36088DE

PATIENT
  Age: 75 Year
  Sex: Female
  Weight: 72 kg

DRUGS (9)
  1. SIMASTATIN [Concomitant]
     Route: 065
  2. ESIDRIX [Concomitant]
     Active Substance: HYDROCHLOROTHIAZIDE
     Route: 065
  3. DELIX [Concomitant]
     Active Substance: RAMIPRIL
     Route: 065
  4. PANTOPRAZOLE [Concomitant]
     Active Substance: PANTOPRAZOLE SODIUM
     Route: 065
  5. ASS 100 [Concomitant]
     Active Substance: ASPIRIN
     Route: 065
  6. PROCURALAN [Concomitant]
     Route: 065
  7. PRADAXA [Suspect]
     Active Substance: DABIGATRAN ETEXILATE MESYLATE
     Indication: AORTIC RUPTURE
     Dosage: 220 MG
     Route: 065
     Dates: start: 201308
  8. PRADAXA [Suspect]
     Active Substance: DABIGATRAN ETEXILATE MESYLATE
     Indication: CEREBROVASCULAR ACCIDENT
  9. CONCOR [Concomitant]
     Active Substance: BISOPROLOL FUMARATE
     Route: 065

REACTIONS (15)
  - Off label use [Unknown]
  - Macular fibrosis [Unknown]
  - Pruritus [Unknown]
  - Wound haemorrhage [Recovered/Resolved]
  - Laceration [Recovered/Resolved]
  - Petechiae [Unknown]
  - Injury [Unknown]
  - Renal function test abnormal [Unknown]
  - Vasodilatation [Unknown]
  - Weight increased [Not Recovered/Not Resolved]
  - Wound haematoma [Unknown]
  - Vascular injury [Unknown]
  - Macular oedema [Unknown]
  - Pain [Unknown]
  - Abdominal distension [Unknown]

NARRATIVE: CASE EVENT DATE: 201401
